FAERS Safety Report 6123868-X (Version None)
Quarter: 2009Q1

REPORT INFORMATION
  Report Type: 
  Country: None (occurrence: None)
  Receive Date: 20090319
  Receipt Date: 20090316
  Transmission Date: 20090719
  Serious: Yes (Hospitalization)
  Sender: FDA-Public Use
  Company Number: US-BIOGENIDEC-2008BI016129

PATIENT
  Age: 65 Year
  Sex: Female

DRUGS (7)
  1. TYSABRI [Suspect]
     Indication: MULTIPLE SCLEROSIS
     Route: 042
     Dates: start: 20080411
  2. TYSABRI [Suspect]
     Route: 042
     Dates: start: 20080411
  3. ASPIRIN [Concomitant]
     Route: 048
  4. LOPRESSOR [Concomitant]
     Route: 048
  5. PLAVIX [Concomitant]
     Route: 048
  6. PROAMATINE [Concomitant]
     Route: 048
  7. ZOCOR [Concomitant]
     Route: 048

REACTIONS (11)
  - ADRENAL MASS [None]
  - BODY TEMPERATURE INCREASED [None]
  - CHEST PAIN [None]
  - CORONARY ARTERY DISEASE [None]
  - CORONARY ARTERY OCCLUSION [None]
  - DYSPNOEA [None]
  - HYPONATRAEMIA [None]
  - LETHARGY [None]
  - MOBILITY DECREASED [None]
  - ORTHOSTATIC HYPOTENSION [None]
  - PULMONARY MASS [None]
